FAERS Safety Report 7892596-2 (Version None)
Quarter: 2011Q4

REPORT INFORMATION
  Report Type: 
  Country: None (occurrence: None)
  Receive Date: 20111027
  Receipt Date: 20111020
  Transmission Date: 20120403
  Serious: Yes (Other)
  Sender: FDA-Public Use
  Company Number: 2011027426

PATIENT
  Age: 52 Year
  Sex: Female
  Weight: 84.369 kg

DRUGS (15)
  1. ZEMAIRA [Suspect]
     Indication: ALPHA-1 ANTI-TRYPSIN DEFICIENCY
     Dosage: SEE IMAGE
     Route: 042
     Dates: start: 20070201
  2. PROAIR HFA (PROCATEROL HYDROCHLORIDE) [Concomitant]
  3. DIPHENHYDRAMINE HCL [Concomitant]
  4. HEPARIN	(HEPARIN) [Concomitant]
  5. LORCET-HD [Concomitant]
  6. GUAIFENESIN [Concomitant]
  7. ZEMAIRA [Suspect]
  8. ADVAIR	(SERETIDE /01420901/) [Concomitant]
  9. VALIUM [Concomitant]
  10. EPI-PEN (EPINEPHRINE) [Concomitant]
  11. SPIRIVA (TIOTROPIUM BROMIDE) [Concomitant]
  12. ZEMAIRA [Suspect]
  13. ZEMAIRA [Suspect]
  14. MULTIVITAMIN (ACCOMIN MULTIVITAMIN) [Concomitant]
  15. ACETAMINOPHEN [Concomitant]

REACTIONS (4)
  - MALAISE [None]
  - INFUSION RELATED REACTION [None]
  - UPPER RESPIRATORY TRACT INFECTION [None]
  - FATIGUE [None]
